FAERS Safety Report 6983547-3 (Version None)
Quarter: 2010Q3

REPORT INFORMATION
  Report Type: 
  Country: None (occurrence: None)
  Receive Date: 20100914
  Receipt Date: 20080827
  Transmission Date: 20110219
  Serious: No
  Sender: FDA-Public Use
  Company Number: US-WYE-H05739708

PATIENT
  Age: 67 Year
  Sex: Female
  Weight: 68.1 kg

DRUGS (1)
  1. ADVIL LIQUI-GELS [Suspect]
     Indication: CONTUSION
     Route: 048
     Dates: start: 20080824, end: 20080826

REACTIONS (2)
  - EYE PRURITUS [None]
  - LACRIMATION INCREASED [None]
